FAERS Safety Report 22315527 (Version 2)
Quarter: 2023Q2

REPORT INFORMATION
  Report Type: Spontaneous
  Country: IN (occurrence: None)
  Receive Date: 20230512
  Receipt Date: 20230616
  Transmission Date: 20230721
  Serious: Yes (Life-Threatening, Hospitalization, Other)
  Sender: FDA-Public Use
  Company Number: 2023A110384

PATIENT
  Age: 58 Year
  Sex: Male
  Weight: 68.1 kg

DRUGS (3)
  1. OSIMERTINIB [Suspect]
     Active Substance: OSIMERTINIB
     Indication: Non-small cell lung cancer
     Route: 048
     Dates: start: 202209, end: 20230506
  2. GLIMEPIRIDE\METFORMIN [Concomitant]
     Active Substance: GLIMEPIRIDE\METFORMIN
     Dosage: 2 UNKNOWN
  3. TELMISARTAN [Concomitant]
     Active Substance: TELMISARTAN
     Dosage: 40.0MG UNKNOWN

REACTIONS (3)
  - Deep vein thrombosis [Recovering/Resolving]
  - Gangrene [Recovering/Resolving]
  - Thrombosis [Unknown]

NARRATIVE: CASE EVENT DATE: 20230505
